FAERS Safety Report 19736681 (Version 3)
Quarter: 2021Q4

REPORT INFORMATION
  Report Type: Spontaneous
  Country: US (occurrence: US)
  Receive Date: 20210823
  Receipt Date: 20211004
  Transmission Date: 20220303
  Serious: Yes (Life-Threatening, Disabling, Other)
  Sender: FDA-Public Use
  Company Number: NVSC2021US188460

PATIENT
  Age: 63 Year
  Sex: Female
  Weight: 62.8 kg

DRUGS (12)
  1. RECLAST [Suspect]
     Active Substance: ZOLEDRONIC ACID
     Indication: Osteoporosis postmenopausal
     Dosage: 5 MG ONCE/SINGLE (5 MG IN 250 CC NS)
     Route: 042
     Dates: start: 20210721, end: 20210721
  2. VITAMIN D [Concomitant]
     Active Substance: VITAMIN D NOS
     Indication: Product used for unknown indication
     Dosage: 10000 IU, QD
     Route: 065
  3. ASCORBIC ACID [Concomitant]
     Active Substance: ASCORBIC ACID
     Indication: Product used for unknown indication
     Dosage: 2000 MG, QD
     Route: 048
  4. BRIMONIDINE [Concomitant]
     Active Substance: BRIMONIDINE TARTRATE
     Indication: Product used for unknown indication
     Dosage: 1 DF, BID (IN LEFT EYE)
     Route: 065
  5. CALCIUM [Concomitant]
     Active Substance: CALCIUM
     Indication: Product used for unknown indication
     Dosage: 2 DF, QD
     Route: 048
  6. VITAMIN D3 [Concomitant]
     Active Substance: CHOLECALCIFEROL
     Indication: Product used for unknown indication
     Dosage: 10000 IU, QD
     Route: 048
  7. COENZYME Q10 [Concomitant]
     Active Substance: DIETARY SUPPLEMENT\UBIDECARENONE
     Indication: Product used for unknown indication
     Dosage: 100 MG, QD
     Route: 048
  8. VITAMIN B12 [Concomitant]
     Active Substance: CYANOCOBALAMIN
     Indication: Product used for unknown indication
     Dosage: 1 DF, QD
     Route: 048
  9. ESTRADIOL [Concomitant]
     Active Substance: ESTRADIOL
     Indication: Product used for unknown indication
     Dosage: 1 DF, BIW (AT NIGHT)
     Route: 067
  10. LUMIGAN [Concomitant]
     Active Substance: BIMATOPROST
     Indication: Product used for unknown indication
     Dosage: 1 DF (TO BOTH EYES AT BED TIME)
     Route: 065
  11. MAGNESIUM [Concomitant]
     Active Substance: MAGNESIUM
     Indication: Product used for unknown indication
     Dosage: 1 DF, QD
     Route: 048
  12. TIMOPTIC [Concomitant]
     Active Substance: TIMOLOL MALEATE
     Indication: Product used for unknown indication
     Dosage: 1 DF, BID (1 DROP TO LEFT EYE ONLY)
     Route: 065

REACTIONS (26)
  - Hypersensitivity [Unknown]
  - Acute phase reaction [Recovered/Resolved]
  - Retinal detachment [Unknown]
  - Toxicity to various agents [Unknown]
  - Migraine [Unknown]
  - Gait disturbance [Unknown]
  - Ear discomfort [Unknown]
  - Throat tightness [Unknown]
  - Nasal congestion [Not Recovered/Not Resolved]
  - Secretion discharge [Unknown]
  - Bone density decreased [Unknown]
  - Diplopia [Unknown]
  - Thinking abnormal [Unknown]
  - Dry eye [Unknown]
  - Speech disorder [Unknown]
  - Psychomotor hyperactivity [Unknown]
  - Sleep disorder [Unknown]
  - Drug intolerance [Unknown]
  - Fear [Unknown]
  - Asthma [Unknown]
  - Palpitations [Unknown]
  - Feeling abnormal [Unknown]
  - Muscle spasms [Unknown]
  - Vision blurred [Unknown]
  - Pain in jaw [Unknown]
  - Rash [Unknown]

NARRATIVE: CASE EVENT DATE: 20210701
